FAERS Safety Report 5656729-0 (Version None)
Quarter: 2008Q1

REPORT INFORMATION
  Report Type: 
  Country: None (occurrence: None)
  Receive Date: 20080306
  Receipt Date: 20080306
  Transmission Date: 20080703
  Serious: Yes (Life-Threatening)
  Sender: FDA-Public Use
  Company Number: None

PATIENT
  Sex: Female

DRUGS (1)
  1. OSMOPREP [Suspect]
     Dosage: JAN 07 2008 (APPROXIMATE)
     Dates: start: 20080107

REACTIONS (1)
  - RENAL FAILURE ACUTE [None]
